FAERS Safety Report 6509870-4 (Version None)
Quarter: 2009Q4

REPORT INFORMATION
  Report Type: 
  Country: None (occurrence: None)
  Receive Date: 20091222
  Receipt Date: 20091214
  Transmission Date: 20100525
  Serious: Yes (Other)
  Sender: FDA-Public Use
  Company Number: US-JNJFOC-20091204591

PATIENT
  Age: 13 Year
  Sex: Male
  Weight: 49.9 kg

DRUGS (2)
  1. TYLENOL COLD MULTI-SYMPTOM DAYTIME CITRUS BURST [Suspect]
     Indication: NASOPHARYNGITIS
     Route: 048
  2. HUMALOG [Concomitant]
     Indication: DIABETES MELLITUS

REACTIONS (1)
  - BLOOD GLUCOSE INCREASED [None]
